FAERS Safety Report 8409267-6 (Version None)
Quarter: 2012Q2

REPORT INFORMATION
  Report Type: 
  Country: None (occurrence: None)
  Receive Date: 20120605
  Receipt Date: 20120525
  Transmission Date: 20120825
  Serious: Yes (Death, Other)
  Sender: FDA-Public Use
  Company Number: GR-BRISTOL-MYERS SQUIBB COMPANY-16659989

PATIENT
  Age: 49 Year
  Sex: Male

DRUGS (4)
  1. ZIDOVUDINE [Suspect]
     Indication: HIV INFECTION
  2. LAMIVUDINE [Suspect]
     Indication: HIV INFECTION
  3. LOPINAVIR/RITONAVIR [Suspect]
     Indication: HIV INFECTION
  4. DIDANOSINE [Suspect]
     Indication: HIV INFECTION

REACTIONS (8)
  - THROMBOCYTOPENIA [None]
  - HEPATOTOXICITY [None]
  - HEPATIC ENCEPHALOPATHY [None]
  - HEPATIC CIRRHOSIS [None]
  - PORTAL HYPERTENSIVE GASTROPATHY [None]
  - GASTROINTESTINAL HAEMORRHAGE [None]
  - PORTAL HYPERTENSION [None]
  - ASCITES [None]
